FAERS Safety Report 4936719-3 (Version None)
Quarter: 2006Q1

REPORT INFORMATION
  Report Type: 
  Country: None (occurrence: None)
  Receive Date: 20060302
  Receipt Date: 20060214
  Transmission Date: 20060701
  Serious: Yes (Other)
  Sender: FDA-Public Use
  Company Number: BR-2006-002902

PATIENT
  Age: 59 Year
  Sex: Male

DRUGS (3)
  1. BETASERON [Suspect]
     Indication: MULTIPLE SCLEROSIS
     Dosage: MIU, EVERY 2D, SUBCUTANEOUS
     Route: 058
     Dates: start: 20060211
  2. DIURESAL [Concomitant]
  3. ENALAPRIL MALEATE [Concomitant]

REACTIONS (13)
  - ARTHRALGIA [None]
  - CHILLS [None]
  - CONVULSION [None]
  - FEELING HOT [None]
  - HYPERAEMIA [None]
  - INJECTION SITE REACTION [None]
  - LOSS OF CONSCIOUSNESS [None]
  - MUSCLE RIGIDITY [None]
  - MUSCLE SPASMS [None]
  - NAUSEA [None]
  - NIGHTMARE [None]
  - PYREXIA [None]
  - VOMITING [None]
